FAERS Safety Report 11361007 (Version 2)
Quarter: 2016Q2

REPORT INFORMATION
  Report Type: Spontaneous
  Country: US (occurrence: US)
  Receive Date: 20150810
  Receipt Date: 20160524
  Transmission Date: 20160815
  Serious: No
  Sender: FDA-Public Use
  Company Number: US-PFIZER INC-2015261996

PATIENT
  Age: 47 Year
  Sex: Female
  Weight: 113 kg

DRUGS (1)
  1. LYRICA [Suspect]
     Active Substance: PREGABALIN
     Indication: PAIN
     Dosage: 50 MG, 2X/DAY
     Route: 048
     Dates: start: 2015

REACTIONS (5)
  - Pain [Unknown]
  - Malaise [Unknown]
  - Dermatitis contact [Unknown]
  - Feeling abnormal [Unknown]
  - Pruritus [Unknown]
